FAERS Safety Report 24576396 (Version 1)
Quarter: 2024Q4

REPORT INFORMATION
  Report Type: Spontaneous
  Country: US (occurrence: US)
  Receive Date: 20241104
  Receipt Date: 20241104
  Transmission Date: 20250115
  Serious: No
  Sender: Harrow Health
  Company Number: US-IMP-2024000891

PATIENT
  Age: 72 Year
  Sex: Male

DRUGS (1)
  1. VEVYE [Suspect]
     Active Substance: CYCLOSPORINE
     Indication: Product used for unknown indication
     Route: 047
     Dates: start: 20240930, end: 2024

REACTIONS (2)
  - Eye pain [Unknown]
  - Liquid product physical issue [Unknown]

NARRATIVE: CASE EVENT DATE: 20241020
